FAERS Safety Report 9308402 (Version 3)
Quarter: 2013Q3

REPORT INFORMATION
  Report Type: Report from Study
  Country: RO (occurrence: RO)
  Receive Date: 20130524
  Receipt Date: 20130821
  Transmission Date: 20140515
  Serious: Yes (Other)
  Sender: FDA-Public Use
  Company Number: RO-ABBOTT-13P-135-1092242-00

PATIENT
  Age: 20 Year
  Sex: Female

DRUGS (3)
  1. ALUVIA [Suspect]
     Indication: HIV INFECTION
     Route: 048
     Dates: start: 20100506
  2. ETRAVIRINE [Concomitant]
     Indication: HIV INFECTION
     Route: 048
     Dates: start: 20120616, end: 20130312
  3. COMBIVIR [Concomitant]
     Indication: HIV INFECTION
     Route: 048
     Dates: start: 20100506

REACTIONS (1)
  - Abortion induced [Unknown]
